FAERS Safety Report 25238498 (Version 1)
Quarter: 2025Q2

REPORT INFORMATION
  Report Type: Report from Study
  Country: US (occurrence: US)
  Receive Date: 20250425
  Receipt Date: 20250425
  Transmission Date: 20250716
  Serious: Yes (Hospitalization)
  Sender: GALDERMA
  Company Number: US-GALDERMA-US2025005847

PATIENT

DRUGS (1)
  1. NEMOLIZUMAB [Suspect]
     Active Substance: NEMOLIZUMAB
     Indication: Dermatitis atopic
     Route: 058
     Dates: start: 20250404, end: 20250404

REACTIONS (7)
  - Ear pain [Recovering/Resolving]
  - Ear swelling [Recovering/Resolving]
  - Middle ear effusion [Recovering/Resolving]
  - Headache [Recovering/Resolving]
  - Sinus congestion [Recovering/Resolving]
  - Dry skin [Unknown]
  - Sleep disorder [Recovering/Resolving]

NARRATIVE: CASE EVENT DATE: 20250401
